FAERS Safety Report 22531146 (Version 2)
Quarter: 2023Q2

REPORT INFORMATION
  Report Type: Report from Study
  Country: GB (occurrence: GB)
  Receive Date: 20230607
  Receipt Date: 20230613
  Transmission Date: 20230721
  Serious: Yes (Other)
  Sender: FDA-Public Use
  Company Number: GB-ABBVIE-5279613

PATIENT
  Sex: Female

DRUGS (1)
  1. HUMIRA [Suspect]
     Active Substance: ADALIMUMAB
     Indication: Psoriatic arthropathy
     Dosage: FORM STRENGTH - 40 MG
     Route: 058

REACTIONS (8)
  - Cardiac disorder [Unknown]
  - Atrial fibrillation [Unknown]
  - Weight increased [Unknown]
  - Anxiety [Unknown]
  - Fluid retention [Unknown]
  - Oedema peripheral [Unknown]
  - Malaise [Unknown]
  - Dyspnoea [Unknown]
